FAERS Safety Report 11154409 (Version 1)
Quarter: 2015Q2

REPORT INFORMATION
  Report Type: Spontaneous
  Country: US (occurrence: US)
  Receive Date: 20150602
  Receipt Date: 20150602
  Transmission Date: 20150821
  Serious: No
  Sender: FDA-Public Use
  Company Number: US-NOVEN PHARMACEUTICALS, INC.-14US013035

PATIENT
  Sex: Female
  Weight: 34.92 kg

DRUGS (1)
  1. DAYTRANA [Suspect]
     Active Substance: METHYLPHENIDATE
     Indication: ATTENTION DEFICIT/HYPERACTIVITY DISORDER
     Dosage: 30 MG, UNK
     Route: 062
     Dates: start: 2010, end: 201309

REACTIONS (4)
  - Decreased appetite [Recovered/Resolved]
  - Application site discolouration [Not Recovered/Not Resolved]
  - Weight decreased [Recovered/Resolved]
  - Initial insomnia [Recovered/Resolved]

NARRATIVE: CASE EVENT DATE: 2013
